FAERS Safety Report 7812075-8 (Version None)
Quarter: 2011Q4

REPORT INFORMATION
  Report Type: 
  Country: None (occurrence: None)
  Receive Date: 20111013
  Receipt Date: 20111004
  Transmission Date: 20120403
  Serious: Yes (Death)
  Sender: FDA-Public Use
  Company Number: CN-BAXTER-2011BH031644

PATIENT

DRUGS (10)
  1. NEUPOGEN [Concomitant]
     Indication: PRODUCT USED FOR UNKNOWN INDICATION
     Route: 042
  2. METHOTREXATE [Concomitant]
     Route: 065
  3. PHENYTOIN [Concomitant]
     Indication: PROPHYLAXIS
     Route: 065
  4. PROSTAGLANDIN E1 [Concomitant]
     Indication: PROPHYLAXIS
     Route: 065
  5. CYCLOPHOSPHAMIDE [Suspect]
     Indication: BONE MARROW CONDITIONING REGIMEN
     Route: 042
  6. ANTI-THYMOCYTE GLOBULIN RABBIT NOS [Concomitant]
     Indication: PRODUCT USED FOR UNKNOWN INDICATION
     Route: 065
  7. BUSULFAN [Suspect]
     Indication: BONE MARROW CONDITIONING REGIMEN
     Route: 042
  8. METHOTREXATE [Concomitant]
     Indication: PRODUCT USED FOR UNKNOWN INDICATION
     Route: 065
  9. CYCLOSPORINE [Concomitant]
     Indication: PROPHYLAXIS AGAINST GRAFT VERSUS HOST DISEASE
     Route: 042
  10. MYCOPHENOLATE MOFETIL [Concomitant]
     Indication: PRODUCT USED FOR UNKNOWN INDICATION
     Route: 065

REACTIONS (1)
  - PULMONARY ALVEOLAR HAEMORRHAGE [None]
